FAERS Safety Report 4540001-6 (Version None)
Quarter: 2004Q4

REPORT INFORMATION
  Report Type: 
  Country: None (occurrence: None)
  Receive Date: 20041223
  Receipt Date: 20041215
  Transmission Date: 20050328
  Serious: Yes (Life-Threatening, Hospitalization)
  Sender: FDA-Public Use
  Company Number: 200409156

PATIENT
  Age: 70 Year
  Sex: Male
  Weight: 85 kg

DRUGS (4)
  1. HAEMATE P(FACTOR V111)ANTIHAEMOPHILIC FACTOR [Suspect]
     Indication: OTORHINOLARYNGOLOGICAL SURGERY
     Dosage: 1000 IU QID IV
     Route: 042
     Dates: start: 20040628, end: 20040628
  2. HAEMATE P(FACTOR V111)ANTIHAEMOPHILIC FACTOR [Suspect]
     Indication: VON WILLEBRAND'S DISEASE
     Dosage: 1000 IU QID IV
     Route: 042
     Dates: start: 20040628, end: 20040628
  3. OMNIC [Concomitant]
  4. PRAVASIN [Concomitant]

REACTIONS (3)
  - ANAPHYLACTIC REACTION [None]
  - CARDIOVASCULAR DISORDER [None]
  - HYPERSENSITIVITY [None]
